FAERS Safety Report 24025638 (Version 3)
Quarter: 2024Q3

REPORT INFORMATION
  Report Type: Report from Study
  Country: CN (occurrence: CN)
  Receive Date: 20240628
  Receipt Date: 20240710
  Transmission Date: 20241017
  Serious: No
  Sender: ROCHE
  Company Number: CN-ROCHE-3306084

PATIENT
  Age: 68 Year
  Sex: Male
  Weight: 79.0 kg

DRUGS (25)
  1. ALECTINIB [Suspect]
     Active Substance: ALECTINIB
     Indication: Lung cancer metastatic
     Route: 048
     Dates: start: 20211028
  2. BRIGATINIB [Concomitant]
     Active Substance: BRIGATINIB
     Dates: start: 20220822, end: 20230724
  3. OXYCODONE HYDROCHLORIDE [Concomitant]
     Active Substance: OXYCODONE HYDROCHLORIDE
     Indication: Analgesic therapy
     Route: 048
     Dates: start: 20220825, end: 20220831
  4. OXYCODONE HYDROCHLORIDE [Concomitant]
     Active Substance: OXYCODONE HYDROCHLORIDE
     Route: 048
     Dates: start: 20230516, end: 20230522
  5. LACTULOSE [Concomitant]
     Active Substance: LACTULOSE
     Route: 048
     Dates: start: 20220826, end: 20220901
  6. ERTAPENEM [Concomitant]
     Active Substance: ERTAPENEM
     Route: 050
     Dates: start: 20220728, end: 20220728
  7. GLUTATHIONE [Concomitant]
     Active Substance: GLUTATHIONE
     Dates: start: 20220728, end: 20220728
  8. HERBALS [Concomitant]
     Active Substance: HERBALS
     Dates: start: 20220728, end: 20220728
  9. ASPIRIN DL-LYSINE [Concomitant]
     Active Substance: ASPIRIN DL-LYSINE
     Dates: start: 20220728, end: 20220728
  10. BRIGATINIB [Concomitant]
     Active Substance: BRIGATINIB
     Dates: start: 20220822, end: 20220822
  11. OMEPRAZOLE [Concomitant]
     Active Substance: OMEPRAZOLE
     Route: 050
     Dates: start: 20220728, end: 20220728
  12. CANDESARTAN [Concomitant]
     Active Substance: CANDESARTAN
     Indication: Hypertension
     Route: 048
  13. CONFORMAL [Concomitant]
     Indication: Prostatitis
     Dates: start: 2017
  14. ISOSORBIDE DINITRATE [Concomitant]
     Active Substance: ISOSORBIDE DINITRATE
     Indication: Atrial fibrillation
  15. ISOSORBIDE DINITRATE [Concomitant]
     Active Substance: ISOSORBIDE DINITRATE
     Indication: Ventricular fibrillation
  16. ASPIRIN [Concomitant]
     Active Substance: ASPIRIN
     Indication: Atrial fibrillation
  17. ASPIRIN [Concomitant]
     Active Substance: ASPIRIN
     Indication: Ventricular fibrillation
  18. BIOTINIB [Concomitant]
     Dosage: MEDICATION START AND END DATE: 22-AUG-2022/29-JUL-2022
     Dates: start: 20211128, end: 20220729
  19. ZOLEDRONIC ACID [Concomitant]
     Active Substance: ZOLEDRONIC ACID
     Route: 042
     Dates: start: 20230516, end: 20230516
  20. ZOLEDRONIC ACID [Concomitant]
     Active Substance: ZOLEDRONIC ACID
     Route: 042
     Dates: start: 20230620, end: 20230620
  21. IBUPROFEN [Concomitant]
     Active Substance: IBUPROFEN
     Route: 048
     Dates: start: 20230722, end: 20230722
  22. BICYCLOL [Concomitant]
     Active Substance: BICYCLOL
     Route: 048
     Dates: start: 202111
  23. RIVAROXABAN [Concomitant]
     Active Substance: RIVAROXABAN
     Indication: Venous thrombosis
     Route: 048
     Dates: start: 202208
  24. PHOSPHOLIPID [Concomitant]
     Active Substance: PHOSPHOLIPID
     Dosage: 1 CAPSULE?LIVER PROTECTION
     Route: 048
     Dates: start: 2022
  25. COMPOUND PARACETAMOL AND AMANTADINE HYDROCHLORIDE [Concomitant]
     Dosage: 1 CAPSULE?BRING DOWN A FEVER
     Route: 048
     Dates: start: 20230722, end: 20230723

REACTIONS (1)
  - Gamma-glutamyltransferase increased [Recovering/Resolving]

NARRATIVE: CASE EVENT DATE: 20220822
